FAERS Safety Report 10903224 (Version 2)
Quarter: 2015Q2

REPORT INFORMATION
  Report Type: Spontaneous
  Country: JP (occurrence: JP)
  Receive Date: 20150311
  Receipt Date: 20150407
  Transmission Date: 20150821
  Serious: Yes (Life-Threatening, Hospitalization, Other)
  Sender: FDA-Public Use
  Company Number: JP-ROCHE-1549556

PATIENT
  Age: 67 Year
  Sex: Male
  Weight: 60 kg

DRUGS (25)
  1. AVASTIN [Suspect]
     Active Substance: BEVACIZUMAB
     Indication: RECTAL CANCER METASTATIC
     Route: 041
     Dates: start: 20140402
  2. CILOSTAZOL. [Suspect]
     Active Substance: CILOSTAZOL
     Indication: CAROTID ARTERY STENOSIS
     Dosage: DOSAGE IS UNCERTAIN.
     Route: 048
     Dates: start: 20140220
  3. ELPLAT [Concomitant]
     Active Substance: OXALIPLATIN
     Indication: COLON CANCER
     Dosage: DOSAGE IS UNCERTAIN.
     Route: 041
     Dates: start: 20140318
  4. DECADRON [Concomitant]
     Active Substance: DEXAMETHASONE
     Indication: PROPHYLAXIS
     Route: 065
     Dates: start: 20140227, end: 20150202
  5. 5-FU [Concomitant]
     Active Substance: FLUOROURACIL
     Indication: COLON CANCER
     Dosage: DOSAGE IS UNCERTAIN.
     Route: 040
     Dates: start: 20140402
  6. 5-FU [Concomitant]
     Active Substance: FLUOROURACIL
     Indication: COLON CANCER
     Dosage: DOSAGE IS UNCERTAIN.
     Route: 041
     Dates: start: 20141020
  7. 5-FU [Concomitant]
     Active Substance: FLUOROURACIL
     Indication: RECTAL CANCER METASTATIC
     Route: 041
     Dates: start: 20140227, end: 20150202
  8. CALCIUM LEVOFOLINATE [Concomitant]
     Active Substance: LEVOLEUCOVORIN CALCIUM
     Indication: COLON CANCER
     Dosage: DOSAGE IS UNCERTAIN.
     Route: 041
     Dates: start: 20140318
  9. CALCIUM LEVOFOLINATE [Concomitant]
     Active Substance: LEVOLEUCOVORIN CALCIUM
     Indication: COLON CANCER
     Dosage: DOSAGE IS UNCERTAIN.
     Route: 041
     Dates: start: 20140402
  10. GASTER (JAPAN) [Concomitant]
     Dosage: DOSAGE IS UNCERTAIN.
     Route: 065
  11. 5-FU [Concomitant]
     Active Substance: FLUOROURACIL
     Indication: COLON CANCER
     Dosage: DOSAGE IS UNCERTAIN.
     Route: 041
     Dates: start: 20140318
  12. ALOXI [Concomitant]
     Active Substance: PALONOSETRON HYDROCHLORIDE
     Indication: PROPHYLAXIS
     Route: 041
     Dates: start: 20141020, end: 20150202
  13. TRAZENTA [Concomitant]
     Active Substance: LINAGLIPTIN
     Dosage: DOSAGE IS UNCERTAIN.
     Route: 065
  14. AVASTIN [Suspect]
     Active Substance: BEVACIZUMAB
     Indication: RECTAL CANCER METASTATIC
     Route: 041
     Dates: start: 20140227, end: 20150202
  15. AVASTIN [Suspect]
     Active Substance: BEVACIZUMAB
     Indication: COLON CANCER
     Dosage: WITH FOLFIRI
     Route: 041
     Dates: start: 20141020, end: 20150304
  16. 5-FU [Concomitant]
     Active Substance: FLUOROURACIL
     Indication: COLON CANCER
     Dosage: DOSAGE IS UNCERTAIN.
     Route: 041
     Dates: start: 20140402
  17. 5-FU [Concomitant]
     Active Substance: FLUOROURACIL
     Indication: COLON CANCER
     Dosage: DOSAGE IS UNCERTAIN.
     Route: 040
     Dates: start: 20141020
  18. 5-FU [Concomitant]
     Active Substance: FLUOROURACIL
     Indication: COLON CANCER
     Dosage: DOSAGE IS UNCERTAIN.
     Route: 040
     Dates: start: 20140318
  19. CAMPTO [Concomitant]
     Active Substance: IRINOTECAN
     Indication: COLON CANCER
     Dosage: DOSAGE IS UNCERTAIN.
     Route: 041
     Dates: start: 20141020
  20. ELPLAT [Concomitant]
     Active Substance: OXALIPLATIN
     Indication: COLON CANCER
     Dosage: DOSAGE IS UNCERTAIN.
     Route: 041
     Dates: start: 20140402
  21. ELPLAT [Concomitant]
     Active Substance: OXALIPLATIN
     Indication: RECTAL CANCER METASTATIC
     Route: 041
     Dates: start: 20140227, end: 20140728
  22. CALCIUM LEVOFOLINATE [Concomitant]
     Active Substance: LEVOLEUCOVORIN CALCIUM
     Indication: COLON CANCER
     Dosage: DOSAGE IS UNCERTAIN.
     Route: 041
     Dates: start: 20141020
  23. CALCIUM LEVOFOLINATE [Concomitant]
     Active Substance: LEVOLEUCOVORIN CALCIUM
     Indication: RECTAL CANCER METASTATIC
     Route: 041
     Dates: start: 20140227, end: 20150202
  24. GRANISETRON [Concomitant]
     Active Substance: GRANISETRON
     Indication: PROPHYLAXIS
     Route: 041
     Dates: start: 20140227, end: 20140922
  25. CAMPTO [Concomitant]
     Active Substance: IRINOTECAN
     Indication: RECTAL CANCER METASTATIC
     Route: 041
     Dates: start: 20141020, end: 20150202

REACTIONS (4)
  - Pneumonia aspiration [Unknown]
  - Cerebral haemorrhage [Unknown]
  - Carotid artery stenosis [Unknown]
  - Thalamus haemorrhage [Recovered/Resolved with Sequelae]

NARRATIVE: CASE EVENT DATE: 20150207
